FAERS Safety Report 5811345-2 (Version None)
Quarter: 2008Q3

REPORT INFORMATION
  Report Type: 
  Country: None (occurrence: None)
  Receive Date: 20080711
  Receipt Date: 20080625
  Transmission Date: 20090109
  Serious: Yes (Hospitalization)
  Sender: FDA-Public Use
  Company Number: 2008BI010735

PATIENT
  Age: 64 Year
  Sex: Male

DRUGS (7)
  1. AVONEX [Suspect]
     Indication: RELAPSING-REMITTING MULTIPLE SCLEROSIS
     Dosage: 30 UG;QW;IM
     Route: 042
     Dates: start: 20071001
  2. FASTIC [Concomitant]
  3. ASPIRIN [Concomitant]
  4. ADALAT [Concomitant]
  5. DIOVAN [Concomitant]
  6. OMEPRAL [Concomitant]
  7. PREDONINE [Concomitant]

REACTIONS (3)
  - CEREBELLAR INFARCTION [None]
  - FACIAL PALSY [None]
  - HAEMOGLOBIN DECREASED [None]
